FAERS Safety Report 9921595 (Version 2)
Quarter: 2014Q2

REPORT INFORMATION
  Report Type: Spontaneous
  Country: US (occurrence: US)
  Receive Date: 20140225
  Receipt Date: 20140403
  Transmission Date: 20141212
  Serious: No
  Sender: FDA-Public Use
  Company Number: US-PFIZER INC-2014051580

PATIENT
  Age: 60 Year
  Sex: Female

DRUGS (8)
  1. EFFEXOR XR [Suspect]
     Dosage: UNK
  2. MORPHINE SULFATE [Suspect]
     Dosage: UNK
  3. EFFEXOR [Suspect]
     Dosage: UNK
  4. PROZAC [Suspect]
     Dosage: UNK
  5. SEROQUEL [Suspect]
     Dosage: UNK
  6. HALDOL [Suspect]
     Dosage: UNK
  7. WELLBUTRIN [Suspect]
     Dosage: UNK
  8. CYMBALTA [Suspect]
     Dosage: UNK

REACTIONS (3)
  - Drug hypersensitivity [Unknown]
  - Mental disorder [Unknown]
  - Feeling abnormal [Unknown]
